FAERS Safety Report 6855111-8 (Version None)
Quarter: 2010Q3

REPORT INFORMATION
  Report Type: 
  Country: None (occurrence: None)
  Receive Date: 20100717
  Receipt Date: 20081125
  Transmission Date: 20110219
  Serious: Yes (Other)
  Sender: FDA-Public Use
  Company Number: US-PFIZER INC-2008000113

PATIENT
  Age: 61 Year
  Sex: Female

DRUGS (2)
  1. VARENICLINE TARTRATE [Suspect]
     Indication: SMOKING CESSATION THERAPY
     Dosage: 1 MG, 2X/DAY
     Route: 048
     Dates: start: 20070125, end: 20070419
  2. GINKGO BILOBA [Suspect]
     Dosage: UNK
     Dates: start: 20070101, end: 20070101

REACTIONS (1)
  - RASH [None]
